FAERS Safety Report 3761019 (Version 3)
Quarter: 2015Q2

REPORT INFORMATION
  Report Type: Spontaneous
  Country: JP (occurrence: JP)
  Receive Date: 20020204
  Receipt Date: 20150429
  Transmission Date: 20150821
  Serious: No
  Sender: FDA-Public Use
  Company Number: PHBS2002JP01071

PATIENT
  Age: 60 Year
  Sex: Male

DRUGS (3)
  1. DAONIL [Concomitant]
     Active Substance: GLYBURIDE
     Dosage: 1 DF, TID
     Route: 048
     Dates: start: 20020111
  2. DIOVAN [Suspect]
     Active Substance: VALSARTAN
     Indication: HYPERTENSION
     Dosage: 80 MG, QD
     Route: 048
     Dates: start: 20011210, end: 20020103
  3. DIOVAN [Suspect]
     Active Substance: VALSARTAN
     Route: 048
     Dates: start: 20011210, end: 20020103

REACTIONS (3)
  - Nausea [Recovering/Resolving]
  - Chronic gastritis [Recovered/Resolved]
  - Abdominal pain upper [Recovering/Resolving]

NARRATIVE: CASE EVENT DATE: 20011224
